FAERS Safety Report 24351299 (Version 2)
Quarter: 2024Q4

REPORT INFORMATION
  Report Type: Spontaneous
  Country: US (occurrence: US)
  Receive Date: 20240923
  Receipt Date: 20241022
  Transmission Date: 20250114
  Serious: No
  Sender: IPSEN BIOPHARMACEUTICALS, INC.
  Company Number: US-IPSEN Group, Research and Development-2024-18496

PATIENT
  Age: 68 Year
  Sex: Female

DRUGS (1)
  1. DYSPORT [Suspect]
     Active Substance: ABOBOTULINUMTOXINA
     Indication: Muscle spasticity
     Route: 050
     Dates: start: 202408, end: 202408

REACTIONS (6)
  - Hypoaesthesia [Recovered/Resolved]
  - Dry mouth [Recovered/Resolved]
  - Limb discomfort [Recovered/Resolved]
  - Affect lability [Recovered/Resolved]
  - Depressive symptom [Recovered/Resolved]
  - Enuresis [Recovered/Resolved]

NARRATIVE: CASE EVENT DATE: 20240911
